FAERS Safety Report 10353145 (Version 2)
Quarter: 2014Q4

REPORT INFORMATION
  Report Type: Spontaneous
  Country: JP (occurrence: JP)
  Receive Date: 20140730
  Receipt Date: 20141022
  Transmission Date: 20150528
  Serious: Yes (Other)
  Sender: FDA-Public Use
  Company Number: PHHY2010JP095869

PATIENT

DRUGS (1)
  1. GLIVEC [Suspect]
     Active Substance: IMATINIB MESYLATE
     Indication: GASTROINTESTINAL STROMAL TUMOUR
     Dosage: 400 MG, QD
     Route: 048
     Dates: start: 200905

REACTIONS (3)
  - Gastrointestinal stromal tumour [Unknown]
  - Neoplasm recurrence [Unknown]
  - Tumour rupture [Unknown]

NARRATIVE: CASE EVENT DATE: 201011
